FAERS Safety Report 16398792 (Version 1)
Quarter: 2019Q3

REPORT INFORMATION
  Report Type: Spontaneous
  Country: US (occurrence: US)
  Receive Date: 20190605
  Receipt Date: 20190605
  Transmission Date: 20191004
  Serious: Yes (Other)
  Sender: FDA-Public Use
  Company Number: None

PATIENT
  Age: 91 Year
  Sex: Male

DRUGS (2)
  1. HALOPERIDOL ORAL SOLUTION USP 2 MG PER ML (NDC 0093-9604-23) [Suspect]
     Active Substance: HALOPERIDOL
     Indication: AGITATION
     Route: 060
     Dates: start: 20190531, end: 20190605
  2. HALOPERIDOL ORAL SOLUTION USP 2 MG PER ML (NDC 0093-9604-23) [Suspect]
     Active Substance: HALOPERIDOL
     Indication: NAUSEA
     Route: 060
     Dates: start: 20190531, end: 20190605

REACTIONS (2)
  - Product complaint [None]
  - Accidental underdose [None]

NARRATIVE: CASE EVENT DATE: 20190604
